FAERS Safety Report 24226619 (Version 4)
Quarter: 2024Q3

REPORT INFORMATION
  Report Type: Spontaneous
  Country: ES (occurrence: ES)
  Receive Date: 20240820
  Receipt Date: 20240917
  Transmission Date: 20241017
  Serious: Yes (Death, Hospitalization, Other)
  Sender: AUROBINDO
  Company Number: ES-ABBVIE-5852513

PATIENT
  Age: 78 Year
  Sex: Female
  Weight: 40 kg

DRUGS (5)
  1. ALPRAZOLAM [Suspect]
     Active Substance: ALPRAZOLAM
     Indication: Product used for unknown indication
     Dosage: 0.5 MILLIGRAM, 0.25 DAY (
     Route: 048
  2. ALPRAZOLAM [Suspect]
     Active Substance: ALPRAZOLAM
     Dosage: 2 MILLIGRAM
     Route: 048
  3. CARBIDOPA\LEVODOPA [Suspect]
     Active Substance: CARBIDOPA\LEVODOPA
     Indication: Parkinson^s disease
     Dosage: UNK
     Dates: start: 20190529
  4. QUETIAPINE [Concomitant]
     Active Substance: QUETIAPINE
     Indication: Product used for unknown indication
     Dosage: 75 MILLIGRAM (FREQUENCY TEXT: 50 MG IN THE MORNING AND 25 MG AT NIGHT)
     Route: 048
  5. SINEMET [Concomitant]
     Active Substance: CARBIDOPA\LEVODOPA
     Indication: Product used for unknown indication
     Dosage: UNK (AT 6PM AND 9PM)
     Route: 065

REACTIONS (18)
  - Death [Fatal]
  - Pneumonia aspiration [Unknown]
  - Parkinson^s disease [Unknown]
  - Dyspnoea [Recovered/Resolved]
  - Pneumonia [Unknown]
  - Respiratory arrest [Unknown]
  - Mobility decreased [Unknown]
  - Communication disorder [Unknown]
  - Depressed mood [Unknown]
  - Lung disorder [Unknown]
  - Speech disorder [Unknown]
  - Freezing phenomenon [Unknown]
  - Dysphagia [Unknown]
  - Cough [Unknown]
  - Somnolence [Recovered/Resolved]
  - Dyskinesia [Recovered/Resolved]
  - Therapeutic product effect incomplete [Unknown]
  - Intentional product misuse [Unknown]

NARRATIVE: CASE EVENT DATE: 20240101
